FAERS Safety Report 7136074-7 (Version None)
Quarter: 2010Q4

REPORT INFORMATION
  Report Type: 
  Country: None (occurrence: None)
  Receive Date: 20101204
  Receipt Date: 20101119
  Transmission Date: 20110411
  Serious: Yes (Hospitalization, Other)
  Sender: FDA-Public Use
  Company Number: DE-BAYER-201047706GPV

PATIENT
  Age: 76 Year
  Sex: Female

DRUGS (1)
  1. VENTAVIS [Suspect]
     Dosage: 5 A?G, UNK
     Route: 055
     Dates: start: 20100813

REACTIONS (1)
  - COR PULMONALE [None]
